FAERS Safety Report 15650735 (Version 1)
Quarter: 2018Q4

REPORT INFORMATION
  Report Type: Spontaneous
  Country: US (occurrence: US)
  Receive Date: 20181123
  Receipt Date: 20181123
  Transmission Date: 20190205
  Serious: Yes (Hospitalization, Other)
  Sender: FDA-Public Use
  Company Number: US-CIPLA LTD.-2018US23128

PATIENT

DRUGS (1)
  1. WARFARIN [Suspect]
     Active Substance: WARFARIN
     Indication: ANTICOAGULANT THERAPY
     Dosage: UNK
     Route: 065

REACTIONS (6)
  - Ecchymosis [Unknown]
  - International normalised ratio increased [Recovered/Resolved]
  - Haematoma [Recovered/Resolved]
  - Haemorrhage [Unknown]
  - Haemoglobin decreased [Recovering/Resolving]
  - Hypovolaemic shock [Unknown]
